FAERS Safety Report 6816971-X (Version None)
Quarter: 2010Q3

REPORT INFORMATION
  Report Type: 
  Country: None (occurrence: None)
  Receive Date: 20100706
  Receipt Date: 20100622
  Transmission Date: 20110219
  Serious: Yes (Hospitalization, Other)
  Sender: FDA-Public Use
  Company Number: PHFR2010GB01128

PATIENT
  Age: 76 Year
  Sex: Male

DRUGS (13)
  1. ACLASTA [Suspect]
     Indication: OSTEOPOROSIS
     Dosage: 5 MG, UNK
     Route: 042
     Dates: start: 20080822, end: 20080822
  2. SALMETEROL [Concomitant]
  3. FLUTICASONE [Concomitant]
  4. ASPIRIN [Concomitant]
  5. DIHYDROCODEINE BITARTRATE INJ [Concomitant]
  6. ACETAMINOPHEN [Concomitant]
  7. FUROSEMIDE [Concomitant]
  8. SPIRONOLACTONE [Concomitant]
  9. VENTOLIN [Concomitant]
  10. DIPROBASE CREAM [Concomitant]
  11. SPIRIVA [Concomitant]
  12. FLUTICASONE PROPIONATE [Concomitant]
  13. CALCICHEW [Concomitant]

REACTIONS (17)
  - AGEUSIA [None]
  - ARTHRALGIA [None]
  - ASTHENIA [None]
  - ASTHMA [None]
  - BACK PAIN [None]
  - CHILLS [None]
  - DRY MOUTH [None]
  - DYSPEPSIA [None]
  - FATIGUE [None]
  - GAIT DISTURBANCE [None]
  - HEADACHE [None]
  - INFLUENZA LIKE ILLNESS [None]
  - MOUTH ULCERATION [None]
  - MYALGIA [None]
  - OCULAR HYPERAEMIA [None]
  - PAIN IN EXTREMITY [None]
  - PYREXIA [None]
